FAERS Safety Report 22386043 (Version 2)
Quarter: 2024Q2

REPORT INFORMATION
  Report Type: Spontaneous
  Country: US (occurrence: US)
  Receive Date: 20230530
  Receipt Date: 20240528
  Transmission Date: 20240715
  Serious: No
  Sender: FDA-Public Use
  Company Number: US-PERRIGO-23US005143

PATIENT
  Age: 66 Year
  Sex: Male
  Weight: 90.703 kg

DRUGS (2)
  1. MINOXIDIL [Suspect]
     Active Substance: MINOXIDIL
     Indication: Alopecia
     Dosage: 1 TABLESPOON, QD
     Route: 061
     Dates: start: 202301, end: 202301
  2. ALIROCUMAB [Concomitant]
     Active Substance: ALIROCUMAB
     Indication: Blood cholesterol abnormal
     Dosage: UNK
     Route: 065
     Dates: start: 2019

REACTIONS (5)
  - Blood pressure increased [Recovered/Resolved]
  - Application site pruritus [Recovered/Resolved]
  - Application site pain [Recovered/Resolved]
  - Incorrect dose administered [Recovered/Resolved]
  - Inappropriate schedule of product administration [Unknown]

NARRATIVE: CASE EVENT DATE: 20230101
